FAERS Safety Report 11064411 (Version 4)
Quarter: 2015Q2

REPORT INFORMATION
  Report Type: Report from Study
  Country: MY (occurrence: MY)
  Receive Date: 20150424
  Receipt Date: 20150515
  Transmission Date: 20150821
  Serious: Yes (Hospitalization)
  Sender: FDA-Public Use
  Company Number: MY-PFIZER INC-2015131938

PATIENT
  Age: 60 Year
  Sex: Female
  Weight: 44 kg

DRUGS (4)
  1. FRUSEMIDE [Concomitant]
     Active Substance: FUROSEMIDE
     Indication: RIGHT VENTRICULAR FAILURE
     Dosage: 40 MG, 2X/DAY
     Route: 048
     Dates: end: 20150412
  2. SILDENAFIL CITRATE. [Suspect]
     Active Substance: SILDENAFIL CITRATE
     Dosage: 50 MG, (25MG AT 4PM, AND 25MG AT 10PM)
  3. NO SUBJECT DRUG [Suspect]
     Active Substance: UNSPECIFIED INGREDIENT
     Dosage: NO DOSE GIVEN
  4. CASPRIN [Concomitant]
     Indication: PULMONARY HYPERTENSION
     Dosage: 100 MG, 1X/DAY
     Route: 048

REACTIONS (1)
  - Hypotension [Recovered/Resolved]

NARRATIVE: CASE EVENT DATE: 20150412
